FAERS Safety Report 9428988 (Version 2)
Quarter: 2013Q3

REPORT INFORMATION
  Report Type: Spontaneous
  Country: FR (occurrence: FR)
  Receive Date: 20130730
  Receipt Date: 20130806
  Transmission Date: 20140515
  Serious: Yes (Hospitalization)
  Sender: FDA-Public Use
  Company Number: FR-PFIZER INC-2013216526

PATIENT
  Age: 41 Year
  Sex: Female

DRUGS (3)
  1. FLUOROURACILE PFIZER [Suspect]
     Indication: INTRADUCTAL PROLIFERATIVE BREAST LESION
     Dosage: 950 UG ONCE PER COURSE
     Route: 042
     Dates: start: 20130705, end: 20130705
  2. EPIRUBICIN EBEWE [Suspect]
     Indication: INTRADUCTAL PROLIFERATIVE BREAST LESION
     Dosage: 190 MG ONCE PER COURSE
     Route: 042
     Dates: start: 20130705, end: 20130705
  3. ENDOXAN [Suspect]
     Indication: INTRADUCTAL PROLIFERATIVE BREAST LESION
     Dosage: 960 MG ONCE PER COURSE
     Route: 042
     Dates: start: 20130705, end: 20130705

REACTIONS (1)
  - Hepatitis [Not Recovered/Not Resolved]
